FAERS Safety Report 12939980 (Version 2)
Quarter: 2016Q4

REPORT INFORMATION
  Report Type: Spontaneous
  Country: US (occurrence: US)
  Receive Date: 20161115
  Receipt Date: 20161122
  Transmission Date: 20170207
  Serious: Yes (Other)
  Sender: FDA-Public Use
  Company Number: US-PFIZER INC-2016523560

PATIENT
  Age: 31 Year
  Sex: Female

DRUGS (3)
  1. LEUCOVORIN. [Concomitant]
     Active Substance: LEUCOVORIN
     Indication: ACUTE LYMPHOCYTIC LEUKAEMIA
     Dosage: UNK
  2. CYTARABINE. [Concomitant]
     Active Substance: CYTARABINE
     Indication: ACUTE LYMPHOCYTIC LEUKAEMIA
     Dosage: UNK
  3. METHOTREXATE SODIUM. [Suspect]
     Active Substance: METHOTREXATE SODIUM
     Indication: ACUTE LYMPHOCYTIC LEUKAEMIA
     Dosage: 1000 MG/M2, UNK
     Route: 042

REACTIONS (1)
  - Liver injury [Recovering/Resolving]
